FAERS Safety Report 5497425-2 (Version None)
Quarter: 2007Q4

REPORT INFORMATION
  Report Type: 
  Country: None (occurrence: None)
  Receive Date: 20071025
  Receipt Date: 20070710
  Transmission Date: 20080405
  Serious: No
  Sender: FDA-Public Use
  Company Number: US-BRISTOL-MYERS SQUIBB COMPANY-13846407

PATIENT
  Age: 60 Year
  Sex: Female
  Weight: 63 kg

DRUGS (3)
  1. METFORMIN HCL [Suspect]
     Indication: DIABETES MELLITUS
     Route: 048
     Dates: start: 20070401
  2. SYNTHROID [Concomitant]
     Dates: start: 19900101
  3. ZOCOR [Concomitant]
     Dates: start: 20040101

REACTIONS (1)
  - DRUG INEFFECTIVE [None]
